FAERS Safety Report 4885007-2 (Version None)
Quarter: 2006Q1

REPORT INFORMATION
  Report Type: 
  Country: None (occurrence: None)
  Receive Date: 20060119
  Receipt Date: 20060113
  Transmission Date: 20060701
  Serious: Yes (Hospitalization)
  Sender: FDA-Public Use
  Company Number: GB-MERCK-0601GBR00076

PATIENT
  Age: 80 Year
  Sex: Female

DRUGS (3)
  1. ZOCOR [Suspect]
     Route: 048
     Dates: start: 20030101, end: 20051217
  2. ASPIRIN [Concomitant]
     Route: 048
     Dates: start: 20000101
  3. BISOPROLOL [Concomitant]
     Route: 048
     Dates: start: 20030101

REACTIONS (1)
  - MYOSITIS [None]
